FAERS Safety Report 11316238 (Version 1)
Quarter: 2015Q3

REPORT INFORMATION
  Report Type: Spontaneous
  Country: US (occurrence: None)
  Receive Date: 20150727
  Receipt Date: 20150727
  Transmission Date: 20151125
  Serious: Yes (Hospitalization)
  Sender: FDA-Public Use
  Company Number: None

PATIENT
  Age: 53 Year
  Sex: Female
  Weight: 65 kg

DRUGS (1)
  1. PROLEUKIN [Suspect]
     Active Substance: ALDESLEUKIN
     Dosage: 285.6 MU
     Dates: end: 20150624

REACTIONS (2)
  - Urinary tract infection [None]
  - Nausea [None]

NARRATIVE: CASE EVENT DATE: 20150713
